FAERS Safety Report 9254657 (Version 1)
Quarter: 2013Q1

REPORT INFORMATION
  Report Type: Spontaneous
  Country: US (occurrence: None)
  Receive Date: 20121210
  Receipt Date: 20121210
  Transmission Date: 20140127
  Serious: No
  Sender: FDA-Public Use
  Company Number: 1209USA003883

PATIENT
  Sex: 0

DRUGS (1)
  1. ZIOPTAN [Suspect]

REACTIONS (1)
  - Hyperaemia [None]
